FAERS Safety Report 4619428-X (Version None)
Quarter: 2005Q2

REPORT INFORMATION
  Report Type: 
  Country: None (occurrence: None)
  Receive Date: 20050321
  Receipt Date: 20040512
  Transmission Date: 20051028
  Serious: Yes (Life-Threatening, Other)
  Sender: FDA-Public Use
  Company Number: 2004-05-0865

PATIENT
  Age: 46 Year
  Sex: Male
  Weight: 99.7913 kg

DRUGS (2)
  1. PEG-INTRON [Suspect]
     Indication: HEPATITIS C
     Dosage: QWK SUBCUTANEOUS
     Route: 058
  2. REBETOL [Suspect]
     Indication: HEPATITIS C

REACTIONS (7)
  - CONTUSION [None]
  - IRRITABILITY [None]
  - MOOD SWINGS [None]
  - MOUTH HAEMORRHAGE [None]
  - MOUTH ULCERATION [None]
  - PYREXIA [None]
  - THROMBOCYTOPENIA [None]
